FAERS Safety Report 10769520 (Version 3)
Quarter: 2015Q1

REPORT INFORMATION
  Report Type: Report from Study
  Country: US (occurrence: US)
  Receive Date: 20150206
  Receipt Date: 20150220
  Transmission Date: 20150721
  Serious: Yes (Hospitalization)
  Sender: FDA-Public Use
  Company Number: US-ABBVIE-15K-163-1328887-00

PATIENT
  Sex: Male

DRUGS (1)
  1. HUMIRA [Suspect]
     Active Substance: ADALIMUMAB
     Indication: CROHN^S DISEASE
     Route: 065
     Dates: start: 20141107

REACTIONS (3)
  - Crohn^s disease [Recovering/Resolving]
  - Hypophagia [Recovered/Resolved]
  - Drug effect delayed [Recovering/Resolving]

NARRATIVE: CASE EVENT DATE: 2014
